FAERS Safety Report 8847086 (Version 2)
Quarter: 2012Q4

REPORT INFORMATION
  Report Type: 
  Country: US (occurrence: US)
  Receive Date: 20121018
  Receipt Date: 20121027
  Transmission Date: 20130627
  Serious: Yes (Other)
  Sender: FDA-Public Use
  Company Number: US-009507513-1210USA006907

PATIENT
  Sex: Female

DRUGS (2)
  1. PEGINTRON [Suspect]
     Indication: HEPATITIS C
     Dosage: Dose form unknown
     Dates: start: 20111104, end: 20121005
  2. AMOXICILLIN [Concomitant]

REACTIONS (22)
  - Weight decreased [Unknown]
  - White blood cell count decreased [Unknown]
  - Skin reaction [Not Recovered/Not Resolved]
  - Red blood cell count decreased [Unknown]
  - Hypersensitivity [Unknown]
  - Poor quality sleep [Unknown]
  - Immune system disorder [Unknown]
  - Infection susceptibility increased [Unknown]
  - Fungal infection [Unknown]
  - Eye swelling [Unknown]
  - Skin disorder [Unknown]
  - Blister [Unknown]
  - Injection site bruising [Unknown]
  - Injection site urticaria [Unknown]
  - Alopecia [Not Recovered/Not Resolved]
  - Amnesia [Unknown]
  - Fatigue [Unknown]
  - Rash [Unknown]
  - Sinusitis [Unknown]
  - Urticaria [Unknown]
  - Decreased appetite [Unknown]
  - Pruritus generalised [Unknown]
